FAERS Safety Report 4421935-X (Version None)
Quarter: 2004Q3

REPORT INFORMATION
  Report Type: 
  Country: None (occurrence: None)
  Receive Date: 20040709
  Receipt Date: 20030630
  Transmission Date: 20050211
  Serious: Yes (Other)
  Sender: FDA-Public Use
  Company Number: US-SHR-03-004677

PATIENT
  Age: 86 Year
  Sex: Female

DRUGS (8)
  1. ULTRAVIST 300 [Suspect]
     Indication: COMPUTERISED TOMOGRAM
     Dosage: 150 ML, 1 DOSE, INTRAVENOUS
     Route: 042
     Dates: start: 20030128, end: 20030128
  2. PLENDIL [Concomitant]
  3. ZOCOR [Concomitant]
  4. ARICEPT [Concomitant]
  5. ATENOLOL [Concomitant]
  6. ALLEGRA [Concomitant]
  7. ACETYLSALICYLIC ACID SRT [Concomitant]
  8. MULTIPLE VITAMINS (RETINOL) [Concomitant]

REACTIONS (3)
  - OROPHARYNGEAL SWELLING [None]
  - PRURITUS GENERALISED [None]
  - SWELLING FACE [None]
